FAERS Safety Report 6990626-3 (Version None)
Quarter: 2010Q3

REPORT INFORMATION
  Report Type: 
  Country: None (occurrence: None)
  Receive Date: 20100916
  Receipt Date: 20100709
  Transmission Date: 20110219
  Serious: Yes (Hospitalization, Other)
  Sender: FDA-Public Use
  Company Number: JP-PFIZER INC-2010086064

PATIENT
  Age: 88 Year
  Sex: Male

DRUGS (11)
  1. LYRICA [Suspect]
     Indication: POST HERPETIC NEURALGIA
     Dosage: 75 MG, 2X/DAY
     Route: 048
     Dates: start: 20100702, end: 20100709
  2. PARIET [Concomitant]
     Dosage: 10 MG, UNK
  3. NORVASC [Concomitant]
     Dosage: 5 MG, UNK
     Route: 048
  4. BLOPRESS [Concomitant]
     Dosage: 12 MG, UNK
  5. PLAVIX [Concomitant]
     Dosage: 75 MG, UNK
  6. ASPIRIN [Concomitant]
     Dosage: 100 MG, UNK
  7. TAMSULOSIN HCL [Concomitant]
     Dosage: 0.2 MG, UNK
  8. ZYLORIC ^FAES^ [Concomitant]
     Dosage: 2 MG, UNK
  9. MAGNESIUM OXIDE [Concomitant]
     Dosage: 660 MG, UNK
  10. MYSLEE [Concomitant]
     Dosage: 5 MG, UNK
  11. SENNOSIDE A [Concomitant]

REACTIONS (10)
  - ASTHENIA [None]
  - CARDIAC FAILURE [None]
  - DIZZINESS [None]
  - DYSPNOEA [None]
  - EYELID OEDEMA [None]
  - FALL [None]
  - FLUID RETENTION [None]
  - GAIT DISTURBANCE [None]
  - OEDEMA PERIPHERAL [None]
  - RESPIRATORY TRACT CONGESTION [None]
